FAERS Safety Report 14364476 (Version 1)
Quarter: 2018Q1

REPORT INFORMATION
  Report Type: Spontaneous
  Country: GB (occurrence: GB)
  Receive Date: 20180108
  Receipt Date: 20180108
  Transmission Date: 20180509
  Serious: Yes (Other)
  Sender: FDA-Public Use
  Company Number: GB-MYLANLABS-2018M1001715

PATIENT
  Age: 42 Year
  Sex: Female

DRUGS (1)
  1. DOXYCYCLINE. [Suspect]
     Active Substance: DOXYCYCLINE
     Indication: HIDRADENITIS
     Dosage: 100 MG, UNK
     Route: 048
     Dates: start: 20170608, end: 20171109

REACTIONS (2)
  - Tearfulness [Recovering/Resolving]
  - Depressed mood [Recovering/Resolving]
